FAERS Safety Report 9201236 (Version 1)
Quarter: 2013Q2

REPORT INFORMATION
  Report Type: Spontaneous
  Country: US (occurrence: US)
  Receive Date: 20130401
  Receipt Date: 20130401
  Transmission Date: 20140414
  Serious: Yes (Other)
  Sender: FDA-Public Use
  Company Number: PHEH2013US007218

PATIENT
  Sex: Male

DRUGS (6)
  1. DIOVAN HCT [Suspect]
     Indication: HYPERTENSION
     Dosage: 1 DF (160 MG VALS + 25 MG HCT), UNK
     Route: 048
  2. DIOVAN HCT [Suspect]
     Dosage: 1 DF (160 MG VALS + 25 MG HCT), BID
     Route: 048
  3. WARFARIN [Concomitant]
     Dosage: UNK UKN, UNK
  4. METOPROLOL [Concomitant]
     Dosage: UNK UKN, UNK
  5. FISH OIL [Concomitant]
     Dosage: UNK UKN, UNK
  6. VITAMIN B12 [Concomitant]
     Dosage: UNK UKN, UNK

REACTIONS (1)
  - Atrial fibrillation [Unknown]
